FAERS Safety Report 23026608 (Version 1)
Quarter: 2023Q4

REPORT INFORMATION
  Report Type: Other
  Country: LB (occurrence: LB)
  Receive Date: 20231004
  Receipt Date: 20231004
  Transmission Date: 20240110
  Serious: Yes (Death, Hospitalization)
  Sender: FDA-Public Use
  Company Number: LB-Bion-012167

PATIENT
  Age: 53 Year
  Sex: Female

DRUGS (5)
  1. DEXAMETHASONE [Suspect]
     Active Substance: DEXAMETHASONE
     Indication: Human herpesvirus 7 infection
     Route: 042
  2. GANCICLOVIR [Concomitant]
     Active Substance: GANCICLOVIR
     Indication: Human herpesvirus 7 infection
     Route: 042
  3. MEROPENEM [Concomitant]
     Active Substance: MEROPENEM
     Indication: Human herpesvirus 7 infection
  4. DEXAMETHASONE [Suspect]
     Active Substance: DEXAMETHASONE
     Indication: Human herpesvirus 7 infection
     Route: 042
  5. DEXAMETHASONE [Suspect]
     Active Substance: DEXAMETHASONE
     Indication: Human herpesvirus 7 infection
     Route: 042

REACTIONS (1)
  - Drug ineffective for unapproved indication [Fatal]
